FAERS Safety Report 8073448-4 (Version None)
Quarter: 2012Q1

REPORT INFORMATION
  Report Type: 
  Country: None (occurrence: None)
  Receive Date: 20120126
  Receipt Date: 20120126
  Transmission Date: 20120608
  Serious: Yes (Hospitalization)
  Sender: FDA-Public Use
  Company Number: None

PATIENT
  Age: 28 Year
  Sex: Male
  Weight: 71.7 kg

DRUGS (1)
  1. EPINEPHRINE [Suspect]

REACTIONS (4)
  - INCORRECT ROUTE OF DRUG ADMINISTRATION [None]
  - ELECTROCARDIOGRAM ST SEGMENT ELEVATION [None]
  - CARDIAC ENZYMES INCREASED [None]
  - CHEST PAIN [None]
